FAERS Safety Report 14872184 (Version 1)
Quarter: 2018Q2

REPORT INFORMATION
  Report Type: Spontaneous
  Country: US (occurrence: US)
  Receive Date: 20180509
  Receipt Date: 20180509
  Transmission Date: 20180711
  Serious: No
  Sender: FDA-Public Use
  Company Number: US-MERZ NORTH AMERICA, INC.-18MRZ-00225

PATIENT
  Sex: Female

DRUGS (1)
  1. XEOMIN [Suspect]
     Active Substance: INCOBOTULINUMTOXINA
     Indication: SKIN COSMETIC PROCEDURE
     Dates: start: 20180420, end: 20180420

REACTIONS (4)
  - Eyelid ptosis [Unknown]
  - Paraesthesia [Unknown]
  - Hypotonia [Unknown]
  - Burning sensation [Unknown]

NARRATIVE: CASE EVENT DATE: 20180504
